FAERS Safety Report 6034358-7 (Version None)
Quarter: 2009Q1

REPORT INFORMATION
  Report Type: 
  Country: None (occurrence: None)
  Receive Date: 20090109
  Receipt Date: 20081208
  Transmission Date: 20090719
  Serious: No
  Sender: FDA-Public Use
  Company Number: DL2008581

PATIENT
  Age: 33 Year
  Sex: Female

DRUGS (2)
  1. MIFEPRISTONE TABLETS, 200 MG (DANCO LABS) [Suspect]
     Indication: ABORTION INDUCED
     Dosage: 200 MG, ORAL
     Route: 048
     Dates: start: 20081018
  2. MISOPROSTOL [Suspect]
     Dosage: 800 MCG, VAGINAL/10/18/08, 10/19/08 OR 19/20/08
     Route: 067

REACTIONS (1)
  - HAEMORRHAGE [None]
